FAERS Safety Report 5033087-6 (Version None)
Quarter: 2006Q2

REPORT INFORMATION
  Report Type: 
  Country: None (occurrence: None)
  Receive Date: 20060504
  Receipt Date: 20051014
  Transmission Date: 20061013
  Serious: Yes (Hospitalization)
  Sender: FDA-Public Use
  Company Number: PHEH2005US11493

PATIENT

DRUGS (1)
  1. TEGRETOL [Suspect]
     Indication: INCORRECT DOSE ADMINISTERED
     Dosage: 6 X 200 MG TABLETS, ORAL
     Route: 048

REACTIONS (1)
  - OVERDOSE [None]
